FAERS Safety Report 7329252-5 (Version None)
Quarter: 2011Q1

REPORT INFORMATION
  Report Type: 
  Country: None (occurrence: None)
  Receive Date: 20110228
  Receipt Date: 20110228
  Transmission Date: 20110831
  Serious: No
  Sender: FDA-Public Use
  Company Number: None

PATIENT
  Age: 18 Year
  Sex: Female
  Weight: 68.0396 kg

DRUGS (1)
  1. METRONIDAZOLE [Suspect]
     Indication: VAGINITIS GARDNERELLA
     Dosage: 1 PILL 2 TIMES DAILY PO
     Route: 048
     Dates: start: 20110115, end: 20110116

REACTIONS (28)
  - CHEST PAIN [None]
  - CHEST DISCOMFORT [None]
  - BURNING SENSATION [None]
  - PARAESTHESIA [None]
  - VERTIGO [None]
  - DIPLOPIA [None]
  - VOMITING [None]
  - PHARYNGEAL OEDEMA [None]
  - EYE PAIN [None]
  - SLEEP DISORDER [None]
  - TINNITUS [None]
  - DYSGEUSIA [None]
  - DIARRHOEA [None]
  - PAIN IN EXTREMITY [None]
  - WEIGHT DECREASED [None]
  - HEADACHE [None]
  - HEART RATE INCREASED [None]
  - DYSPHAGIA [None]
  - EAR PAIN [None]
  - TREMOR [None]
  - BACK PAIN [None]
  - TONGUE DISORDER [None]
  - RASH [None]
  - NAUSEA [None]
  - DIZZINESS [None]
  - PALPITATIONS [None]
  - DEHYDRATION [None]
  - HYPOAESTHESIA [None]
